FAERS Safety Report 10371941 (Version 2)
Quarter: 2014Q3

REPORT INFORMATION
  Report Type: Report from Study
  Country: US (occurrence: US)
  Receive Date: 20140808
  Receipt Date: 20140808
  Transmission Date: 20150326
  Serious: Yes (Hospitalization)
  Sender: FDA-Public Use
  Company Number: US-ABBVIE-14P-163-1262731-00

PATIENT
  Age: 50 Year
  Sex: Male
  Weight: 50.39 kg

DRUGS (1)
  1. HUMIRA [Suspect]
     Active Substance: ADALIMUMAB
     Indication: COLITIS ULCERATIVE
     Dates: start: 20140519, end: 20140702

REACTIONS (5)
  - Gastrointestinal inflammation [Recovering/Resolving]
  - Drug ineffective [Recovering/Resolving]
  - Gastrointestinal pain [Recovering/Resolving]
  - Diarrhoea [Recovering/Resolving]
  - Colectomy [Recovered/Resolved]

NARRATIVE: CASE EVENT DATE: 20140722
